FAERS Safety Report 6838846-2 (Version None)
Quarter: 2010Q3

REPORT INFORMATION
  Report Type: 
  Country: None (occurrence: None)
  Receive Date: 20100713
  Receipt Date: 20070707
  Transmission Date: 20110219
  Serious: No
  Sender: FDA-Public Use
  Company Number: US-PFIZER INC-2007042780

PATIENT
  Age: 64 Year
  Sex: Male
  Weight: 90.9 kg

DRUGS (9)
  1. CHANTIX [Suspect]
     Indication: SMOKING CESSATION THERAPY
     Route: 048
     Dates: start: 20070401, end: 20070101
  2. COMBIVENT [Concomitant]
     Indication: EMPHYSEMA
     Route: 055
  3. DRUG, UNSPECIFIED [Concomitant]
     Indication: EMPHYSEMA
     Route: 055
  4. HYDROCHLOROTHIAZIDE [Concomitant]
     Route: 048
  5. CRESTOR [Concomitant]
     Route: 048
  6. PAXIL [Concomitant]
     Route: 048
  7. PRILOSEC [Concomitant]
     Indication: HYPERCHLORHYDRIA
     Route: 048
  8. ACETYLSALICYLIC ACID [Concomitant]
     Route: 048
  9. MULTI-VITAMINS [Concomitant]
     Route: 048

REACTIONS (2)
  - NAUSEA [None]
  - TOBACCO USER [None]
